FAERS Safety Report 4896503-6 (Version None)
Quarter: 2006Q1

REPORT INFORMATION
  Report Type: 
  Country: None (occurrence: None)
  Receive Date: 20060131
  Receipt Date: 20060125
  Transmission Date: 20060701
  Serious: Yes (Hospitalization)
  Sender: FDA-Public Use
  Company Number: US-GLAXOSMITHKLINE-A0591184A

PATIENT
  Age: 83 Year
  Sex: Female

DRUGS (3)
  1. ADVAIR DISKUS 100/50 [Suspect]
     Indication: ASTHMA
  2. FOSAMAX [Concomitant]
     Dosage: 70MG WEEKLY
  3. CHLOR-TRIMETON [Concomitant]

REACTIONS (5)
  - DEHYDRATION [None]
  - PRURITUS [None]
  - RASH [None]
  - SKIN ATROPHY [None]
  - WEIGHT DECREASED [None]
